FAERS Safety Report 24910210 (Version 1)
Quarter: 2025Q1

REPORT INFORMATION
  Report Type: Spontaneous
  Country: BE (occurrence: BE)
  Receive Date: 20250131
  Receipt Date: 20250131
  Transmission Date: 20250409
  Serious: Yes (Life-Threatening, Hospitalization, Other)
  Sender: PTC THERAPEUTICS
  Company Number: BE-PTC THERAPEUTICS INC.-BE-2025PTC000085

PATIENT
  Age: 4 Year
  Sex: Male

DRUGS (1)
  1. ELADOCAGENE EXUPARVOVEC [Suspect]
     Active Substance: ELADOCAGENE EXUPARVOVEC
     Indication: Aromatic L-amino acid decarboxylase deficiency
     Route: 018
     Dates: start: 202206, end: 202206

REACTIONS (2)
  - Hypoglycaemia [Recovered/Resolved]
  - Seizure [Recovered/Resolved]

NARRATIVE: CASE EVENT DATE: 20241001
